FAERS Safety Report 13902063 (Version 1)
Quarter: 2017Q3

REPORT INFORMATION
  Report Type: Spontaneous
  Country: US (occurrence: US)
  Receive Date: 20170824
  Receipt Date: 20170824
  Transmission Date: 20171127
  Serious: Yes (Other)
  Sender: FDA-Public Use
  Company Number: US-ROCHE-670910

PATIENT
  Age: 41 Year
  Sex: Female

DRUGS (1)
  1. TRASTUZUMAB. [Suspect]
     Active Substance: TRASTUZUMAB
     Indication: MONOCLONAL ANTIBODY UNCONJUGATED THERAPY
     Dosage: UNK
     Route: 065

REACTIONS (2)
  - Ventricular hypertrophy [Unknown]
  - Bradycardia [Unknown]
